FAERS Safety Report 8862250 (Version 1)
Quarter: 2012Q4

REPORT INFORMATION
  Report Type: 
  Country: BE (occurrence: BE)
  Receive Date: 20121026
  Receipt Date: 20121026
  Transmission Date: 20130627
  Serious: Yes (Death, Other)
  Sender: FDA-Public Use
  Company Number: BE-JNJFOC-20120801066

PATIENT
  Age: 70 Year
  Sex: Female

DRUGS (17)
  1. XARELTO [Suspect]
     Indication: CEREBROVASCULAR ACCIDENT PROPHYLAXIS
     Route: 048
     Dates: start: 20120608, end: 20120723
  2. ASAFLOW [Suspect]
     Indication: PRODUCT USED FOR UNKNOWN INDICATION
     Route: 065
  3. PLAVIX [Suspect]
     Indication: PRODUCT USED FOR UNKNOWN INDICATION
     Route: 065
  4. XANTHIUM [Concomitant]
     Route: 065
  5. DUOVENT [Concomitant]
     Route: 065
  6. ELTHYRONE [Concomitant]
     Route: 065
  7. EMCONCOR [Concomitant]
     Route: 065
  8. FOLAVIT [Concomitant]
     Route: 065
  9. LIPITOR [Concomitant]
     Route: 065
  10. PANTOPRAZOLE SODIUM [Concomitant]
     Route: 065
  11. PARACETAMOL [Concomitant]
     Route: 065
  12. ZOLENDRONIC ACID [Concomitant]
     Route: 065
  13. APROVEL [Concomitant]
     Route: 065
     Dates: end: 20120622
  14. SPIRIVA [Concomitant]
     Route: 065
  15. STEOVIT D3 [Concomitant]
     Route: 065
  16. SYMBICORT [Concomitant]
     Route: 065
  17. TRANSTEC [Concomitant]
     Route: 065

REACTIONS (4)
  - Upper gastrointestinal haemorrhage [Fatal]
  - Haematemesis [Unknown]
  - Melaena [Unknown]
  - Epistaxis [Unknown]
